FAERS Safety Report 20176261 (Version 3)
Quarter: 2021Q4

REPORT INFORMATION
  Report Type: Spontaneous
  Country: BR (occurrence: BR)
  Receive Date: 20211213
  Receipt Date: 20211215
  Transmission Date: 20220303
  Serious: Yes (Death, Other)
  Sender: FDA-Public Use
  Company Number: BR-CELGENE-BRA-20211202702

PATIENT
  Age: 83 Year
  Sex: Male

DRUGS (1)
  1. VIDAZA [Suspect]
     Active Substance: AZACITIDINE
     Indication: Myelodysplastic syndrome
     Route: 058
     Dates: end: 202104

REACTIONS (7)
  - Leukaemia [Fatal]
  - Platelet count decreased [Recovered/Resolved]
  - Full blood count decreased [Recovered/Resolved]
  - Application site pain [Recovered/Resolved]
  - Injection site swelling [Unknown]
  - Blast cell count increased [Recovered/Resolved]
  - General physical health deterioration [Unknown]

NARRATIVE: CASE EVENT DATE: 20210401
